FAERS Safety Report 17463779 (Version 3)
Quarter: 2020Q2

REPORT INFORMATION
  Report Type: Report from Study
  Country: None (occurrence: DE)
  Receive Date: 20200226
  Receipt Date: 20200421
  Transmission Date: 20200713
  Serious: Yes (Hospitalization, Other)
  Sender: FDA-Public Use
  Company Number: DE-ABBVIE-20K-062-3293221-00

PATIENT
  Age: 76 Year
  Sex: Male
  Weight: 64 kg

DRUGS (8)
  1. DUODOPA [Suspect]
     Active Substance: CARBIDOPA\LEVODOPA
     Dosage: REDUCED DOSAGE
     Route: 050
  2. DUODOPA [Suspect]
     Active Substance: CARBIDOPA\LEVODOPA
     Indication: PARKINSON^S DISEASE
     Dosage: MD 8.5ML, CRD 6.8ML/H, CRN 4.4ML/H, ED 3.0ML
     Route: 050
     Dates: start: 20170328
  3. VALSACOR [Concomitant]
     Active Substance: VALSARTAN
     Indication: PRODUCT USED FOR UNKNOWN INDICATION
     Route: 065
  4. TAZOBAC [Concomitant]
     Active Substance: PIPERACILLIN SODIUM\TAZOBACTAM SODIUM
     Indication: PRODUCT USED FOR UNKNOWN INDICATION
  5. FLUCLOXACILLIN [Concomitant]
     Active Substance: FLUCLOXACILLIN
     Indication: PRODUCT USED FOR UNKNOWN INDICATION
  6. DUODOPA [Suspect]
     Active Substance: CARBIDOPA\LEVODOPA
     Route: 050
     Dates: start: 201704
  7. CEFAZOLIN [Concomitant]
     Active Substance: CEFAZOLIN
     Indication: PRODUCT USED FOR UNKNOWN INDICATION
  8. ONGENTYS [Concomitant]
     Active Substance: OPICAPONE
     Indication: PRODUCT USED FOR UNKNOWN INDICATION
     Route: 065

REACTIONS (71)
  - Blood pH increased [Unknown]
  - Blood bicarbonate increased [Unknown]
  - Base excess increased [Unknown]
  - Blood potassium increased [Unknown]
  - Gait disturbance [Unknown]
  - Parkinson^s disease [Unknown]
  - Psychotic disorder [Unknown]
  - Glomerular filtration rate decreased [Unknown]
  - Transferrin decreased [Unknown]
  - White blood cells urine positive [Unknown]
  - Haemoglobin decreased [Unknown]
  - PCO2 decreased [Unknown]
  - Hyperkinesia [Unknown]
  - Pulmonary arterial hypertension [Unknown]
  - Right ventricular failure [Unknown]
  - Cough [Not Recovered/Not Resolved]
  - Restlessness [Unknown]
  - Dyspnoea at rest [Recovered/Resolved]
  - Red blood cells urine positive [Unknown]
  - Red blood cell count decreased [Unknown]
  - Haemoglobin decreased [Unknown]
  - PO2 decreased [Unknown]
  - Oxygen saturation decreased [Unknown]
  - Venous oxygen saturation increased [Unknown]
  - Cardiac failure congestive [Unknown]
  - Pneumonia influenzal [Unknown]
  - Wrong technique in device usage process [Recovered/Resolved]
  - Hypertensive heart disease [Unknown]
  - Generalised oedema [Recovered/Resolved]
  - Mental impairment [Unknown]
  - Calcium ionised decreased [Unknown]
  - Bladder disorder [Not Recovered/Not Resolved]
  - Peripheral sensory neuropathy [Unknown]
  - Vitamin B12 increased [Unknown]
  - Venous oxygen partial pressure increased [Unknown]
  - Blood chloride increased [Unknown]
  - Blood lactic acid increased [Unknown]
  - Electrolyte imbalance [Unknown]
  - General physical health deterioration [Recovering/Resolving]
  - Pleural effusion [Unknown]
  - Blood albumin decreased [Unknown]
  - C-reactive protein increased [Unknown]
  - Haematocrit decreased [Unknown]
  - Blood glucose increased [Unknown]
  - Staphylococcal bacteraemia [Unknown]
  - Learning disorder [Unknown]
  - Judgement impaired [Unknown]
  - Blood 25-hydroxycholecalciferol decreased [Unknown]
  - Blood creatinine decreased [Unknown]
  - Serum ferritin increased [Unknown]
  - Red cell distribution width increased [Unknown]
  - Blood pH increased [Unknown]
  - Delirium [Unknown]
  - Infection [Unknown]
  - Tricuspid valve incompetence [Unknown]
  - Dementia [Unknown]
  - Osteoarthritis [Unknown]
  - Memory impairment [Unknown]
  - Fall [Unknown]
  - Blood uric acid decreased [Unknown]
  - Mean cell haemoglobin decreased [Unknown]
  - PCO2 decreased [Unknown]
  - Calcium ionised decreased [Unknown]
  - Hypoalbuminaemia [Recovered/Resolved]
  - Cardiac failure [Recovered/Resolved]
  - Cardiac failure chronic [Unknown]
  - Akinesia [Not Recovered/Not Resolved]
  - Atrial fibrillation [Unknown]
  - Hypovolaemia [Recovered/Resolved]
  - Cognitive disorder [Unknown]
  - pH urine increased [Unknown]

NARRATIVE: CASE EVENT DATE: 202001
